FAERS Safety Report 24623216 (Version 2)
Quarter: 2024Q4

REPORT INFORMATION
  Report Type: Spontaneous
  Country: US (occurrence: US)
  Receive Date: 20241115
  Receipt Date: 20241209
  Transmission Date: 20250115
  Serious: Yes (Other)
  Sender: BRISTOL-MYERS SQUIBB COMPANY
  Company Number: US-BRISTOL-MYERS SQUIBB COMPANY-2024-174558

PATIENT
  Age: 44 Year
  Sex: Male
  Weight: 86.18 kg

DRUGS (2)
  1. KENALOG-40 [Suspect]
     Active Substance: TRIAMCINOLONE ACETONIDE
     Indication: Arachnoiditis
     Dosage: ONE SINGLE EPIDURAL SHOT
     Route: 008
     Dates: start: 202206
  2. KENALOG-40 [Suspect]
     Active Substance: TRIAMCINOLONE ACETONIDE
     Indication: Intervertebral disc protrusion

REACTIONS (7)
  - Headache [Unknown]
  - Burning sensation [Unknown]
  - Muscle spasms [Unknown]
  - Muscular weakness [Unknown]
  - Facial pain [Unknown]
  - Tinnitus [Unknown]
  - Off label use [Unknown]

NARRATIVE: CASE EVENT DATE: 20220601
